FAERS Safety Report 4539600-7 (Version None)
Quarter: 2004Q4

REPORT INFORMATION
  Report Type: 
  Country: None (occurrence: None)
  Receive Date: 20041223
  Receipt Date: 20041213
  Transmission Date: 20050328
  Serious: Yes (Death, Hospitalization)
  Sender: FDA-Public Use
  Company Number: TCI2004A04480

PATIENT
  Age: 80 Year
  Sex: Female

DRUGS (2)
  1. ACTOS [Suspect]
     Indication: DIABETES MELLITUS
     Dosage: 15 MG (15 MG, 1 IN 1 D), PER ORAL
     Route: 048
     Dates: start: 20041122, end: 20041202
  2. INSULIN [Concomitant]

REACTIONS (27)
  - BLOOD ALKALINE PHOSPHATASE INCREASED [None]
  - BLOOD AMYLASE INCREASED [None]
  - BLOOD CHLORIDE DECREASED [None]
  - BLOOD CHOLESTEROL INCREASED [None]
  - BLOOD CREATINE PHOSPHOKINASE INCREASED [None]
  - BLOOD LACTATE DEHYDROGENASE INCREASED [None]
  - BLOOD POTASSIUM INCREASED [None]
  - CARDIAC FAILURE [None]
  - DEHYDRATION [None]
  - DELIRIUM [None]
  - DEPRESSED LEVEL OF CONSCIOUSNESS [None]
  - DIABETIC KETOACIDOSIS [None]
  - DIZZINESS [None]
  - DYSPNOEA [None]
  - EXCITABILITY [None]
  - FALL [None]
  - HAEMOGLOBIN DECREASED [None]
  - HEPATITIS C VIRUS [None]
  - HYPOTENSION [None]
  - LOGORRHOEA [None]
  - PLATELET COUNT INCREASED [None]
  - SHOCK [None]
  - THERAPEUTIC RESPONSE DECREASED [None]
  - TRACHEAL STENOSIS [None]
  - TREATMENT NONCOMPLIANCE [None]
  - VIRAL INFECTION [None]
  - WHITE BLOOD CELL COUNT INCREASED [None]
